FAERS Safety Report 13813975 (Version 1)
Quarter: 2017Q3

REPORT INFORMATION
  Report Type: Spontaneous
  Country: US (occurrence: US)
  Receive Date: 20170731
  Receipt Date: 20170731
  Transmission Date: 20171127
  Serious: No
  Sender: FDA-Public Use
  Company Number: US-PFIZER INC-2017329326

PATIENT
  Age: 46 Year
  Sex: Female

DRUGS (1)
  1. IBRANCE [Suspect]
     Active Substance: PALBOCICLIB
     Indication: BREAST CANCER
     Dosage: 1 DF, DAILY, (FOR 21 DAYS ON AND 7 DAYS OFF)
     Route: 048
     Dates: start: 201707

REACTIONS (2)
  - Hot flush [Unknown]
  - Condition aggravated [Unknown]
